FAERS Safety Report 8611590 (Version 3)
Quarter: 2012Q4

REPORT INFORMATION
  Report Type: Report from Study
  Country: US (occurrence: US)
  Receive Date: 20120613
  Receipt Date: 20121116
  Transmission Date: 20130627
  Serious: Yes (Other)
  Sender: FDA-Public Use
  Company Number: US-JNJFOC-20120602256

PATIENT
  Age: 80 Year
  Sex: Male

DRUGS (21)
  1. ABIRATERONE ACETATE [Suspect]
     Indication: PROSTATE CANCER METASTATIC
     Route: 048
     Dates: start: 20100422
  2. ABIRATERONE ACETATE [Suspect]
     Indication: PROSTATE CANCER METASTATIC
     Route: 048
     Dates: start: 20120830
  3. PREDNISONE [Suspect]
     Indication: PROSTATE CANCER METASTATIC
     Route: 048
     Dates: start: 20100422
  4. NASOCORT [Concomitant]
     Indication: ASTHMA
     Route: 045
     Dates: start: 20110810
  5. LUPRON [Concomitant]
     Indication: PROSTATE CANCER
     Route: 030
     Dates: start: 20100422, end: 20120628
  6. LUPRON [Concomitant]
     Indication: PROSTATE CANCER
     Route: 030
     Dates: start: 20070605
  7. LUPRON [Concomitant]
     Indication: HORMONE THERAPY
     Route: 030
     Dates: start: 20100422, end: 20120628
  8. LUPRON [Concomitant]
     Indication: HORMONE THERAPY
     Route: 030
     Dates: start: 20070605
  9. ZOCOR [Concomitant]
     Indication: HYPERCHOLESTEROLAEMIA
     Route: 048
     Dates: start: 200001
  10. ALBUTEROL [Concomitant]
     Indication: ASTHMA
     Route: 055
     Dates: start: 200801
  11. CALCIUM [Concomitant]
     Indication: MINERAL SUPPLEMENTATION
     Route: 048
     Dates: start: 200801
  12. VITAMIN D [Concomitant]
     Indication: GENERAL PHYSICAL CONDITION
     Route: 048
     Dates: start: 200801
  13. OMEPRAZOLE [Concomitant]
     Indication: GASTROOESOPHAGEAL REFLUX DISEASE
     Route: 048
     Dates: start: 201001
  14. MULTIVITAMINS [Concomitant]
     Indication: GENERAL PHYSICAL CONDITION
     Route: 048
     Dates: start: 201001
  15. ADVAIR [Concomitant]
     Indication: ASTHMA
     Route: 055
     Dates: start: 20101027
  16. CICLOPIROX [Concomitant]
     Indication: SKIN INFECTION
     Route: 061
     Dates: start: 20101110
  17. PRESERVISION [Concomitant]
     Indication: PROPHYLAXIS
     Route: 048
     Dates: start: 20110908
  18. AMIODARONE [Concomitant]
     Indication: ATRIAL FIBRILLATION
     Route: 048
     Dates: start: 20120221, end: 20120531
  19. THIAMINE [Concomitant]
     Indication: MEDICAL DIET
     Route: 048
     Dates: start: 20120320, end: 20120615
  20. MUCINEX [Concomitant]
     Indication: LUNG INFECTION
     Route: 048
     Dates: start: 20120320, end: 201205
  21. ASA [Concomitant]
     Indication: THROMBOSIS
     Route: 048
     Dates: start: 20120301, end: 20120530

REACTIONS (1)
  - Pulmonary embolism [Recovered/Resolved]
